FAERS Safety Report 19485908 (Version 1)
Quarter: 2021Q3

REPORT INFORMATION
  Report Type: Spontaneous
  Country: US (occurrence: US)
  Receive Date: 20210702
  Receipt Date: 20210702
  Transmission Date: 20211014
  Serious: No
  Sender: FDA-Public Use
  Company Number: US-ITALFARMACO SPA-2113406

PATIENT
  Age: 73 Year
  Sex: Male

DRUGS (12)
  1. LEVOTHYROXINE. [Concomitant]
     Active Substance: LEVOTHYROXINE
  2. FISH OIL [Concomitant]
     Active Substance: FISH OIL
  3. CYANOCOBALAMIN. [Concomitant]
     Active Substance: CYANOCOBALAMIN
  4. THYROID [Concomitant]
     Active Substance: LEVOTHYROXINE\LIOTHYRONINE
  5. ASPIRIN. [Concomitant]
     Active Substance: ASPIRIN
  6. TIGLUTIK [Suspect]
     Active Substance: RILUZOLE
     Indication: AMYOTROPHIC LATERAL SCLEROSIS
     Route: 048
     Dates: start: 20210604
  7. UBIQUINOL [Concomitant]
     Active Substance: UBIQUINOL
  8. GLUCOSAMINE [Concomitant]
     Active Substance: GLUCOSAMINE
  9. CHONDROITIN [Concomitant]
     Active Substance: CHONDROITIN
  10. VITAMIN D3 [Concomitant]
     Active Substance: CHOLECALCIFEROL
  11. IODINE (ALCOHOL\IODINE\SODIUM IODIDE) [Concomitant]
     Active Substance: ALCOHOL\IODINE\SODIUM IODIDE
  12. ASCORBIC ACID, CALCIUM?CARBONATE, CYANOCOBALAMIN, NICOTINAMIDE, PYRIDO [Concomitant]

REACTIONS (2)
  - Dry throat [Not Recovered/Not Resolved]
  - Dry mouth [Not Recovered/Not Resolved]

NARRATIVE: CASE EVENT DATE: 20210614
